FAERS Safety Report 9527957 (Version 1)
Quarter: 2013Q3

REPORT INFORMATION
  Report Type: Spontaneous
  Country: CA (occurrence: None)
  Receive Date: 20130913
  Receipt Date: 20130913
  Transmission Date: 20140515
  Serious: Yes (Other)
  Sender: FDA-Public Use
  Company Number: 2013AP007973

PATIENT
  Sex: Male

DRUGS (1)
  1. TRAZADONE [Suspect]
     Indication: SLEEP DISORDER
     Dates: start: 20091217

REACTIONS (9)
  - Priapism [None]
  - Urinary tract infection [None]
  - Scar [None]
  - Psychological trauma [None]
  - Emotional distress [None]
  - Pain [None]
  - Urinary incontinence [None]
  - Erectile dysfunction [None]
  - Off label use [None]
